FAERS Safety Report 6895541-1 (Version None)
Quarter: 2010Q3

REPORT INFORMATION
  Report Type: 
  Country: None (occurrence: None)
  Receive Date: 20100802
  Receipt Date: 20100727
  Transmission Date: 20110219
  Serious: Yes (Death, Hospitalization, Other)
  Sender: FDA-Public Use
  Company Number: PHHY2010US48993

PATIENT
  Weight: 66 kg

DRUGS (3)
  1. DIOVAN [Suspect]
     Indication: HYPERTENSION
     Dosage: UNK
     Route: 048
     Dates: start: 20050101
  2. LEVONORGESTREL AND ETHINYL ESTRADIOL [Suspect]
     Dosage: 0.02/0.1-28; 1 TABLET DAILY
     Route: 048
     Dates: start: 20050101, end: 20100522
  3. LEVONORGESTREL AND ETHINYL ESTRADIOL [Suspect]
     Dosage: 1 TABLET DAILY
     Route: 048
     Dates: start: 20100523

REACTIONS (3)
  - DEEP VEIN THROMBOSIS [None]
  - LOSS OF CONSCIOUSNESS [None]
  - PULMONARY EMBOLISM [None]
